FAERS Safety Report 10264571 (Version 1)
Quarter: 2014Q2

REPORT INFORMATION
  Report Type: Spontaneous
  Country: US (occurrence: US)
  Receive Date: 20140627
  Receipt Date: 20140627
  Transmission Date: 20141212
  Serious: Yes (Other)
  Sender: FDA-Public Use
  Company Number: US-JNJCP-30000226523

PATIENT
  Age: 50 Year
  Sex: Female
  Weight: 71 kg

DRUGS (1)
  1. NEUTROGENA OIL FREE ACNE WASH PINK GRAPEFRUIT FOAMING SCRUB [Suspect]
     Dosage: DIME SIZE, ONCE DAILY
     Route: 047
     Dates: end: 20140615

REACTIONS (5)
  - Accidental exposure to product [Recovered/Resolved]
  - Corneal abrasion [Recovered/Resolved]
  - Chemical injury [Recovered/Resolved]
  - Vomiting [Recovered/Resolved]
  - Nausea [Recovered/Resolved]
